FAERS Safety Report 6121542-7 (Version None)
Quarter: 2009Q1

REPORT INFORMATION
  Report Type: 
  Country: None (occurrence: None)
  Receive Date: 20090317
  Receipt Date: 20090309
  Transmission Date: 20090719
  Serious: Yes (Hospitalization)
  Sender: FDA-Public Use
  Company Number: JP-JNJFOC-20090203720

PATIENT
  Sex: Male

DRUGS (11)
  1. RISPERDAL [Suspect]
     Route: 048
  2. RISPERDAL [Suspect]
     Route: 048
  3. RISPERDAL [Suspect]
     Route: 048
  4. RISPERDAL [Suspect]
     Indication: SCHIZOPHRENIA
     Route: 048
  5. RISPERDAL [Suspect]
     Dosage: AS REQUIRED
     Route: 048
  6. AKINETON [Concomitant]
     Indication: EXTRAPYRAMIDAL DISORDER
     Route: 065
  7. DOGMATYL [Concomitant]
     Indication: DEPRESSION
     Route: 065
  8. SEROQUEL [Concomitant]
     Route: 048
  9. SEROQUEL [Concomitant]
     Indication: DRUG USE FOR UNKNOWN INDICATION
     Route: 048
  10. HIRNAMIN [Concomitant]
     Indication: SCHIZOPHRENIA
     Route: 048
  11. DEPAKENE [Concomitant]
     Indication: DRUG USE FOR UNKNOWN INDICATION
     Route: 048

REACTIONS (3)
  - BIPOLAR DISORDER [None]
  - FATIGUE [None]
  - HEPATITIS [None]
